FAERS Safety Report 8916868 (Version 1)
Quarter: 2012Q4

REPORT INFORMATION
  Report Type: 
  Country: AR (occurrence: AR)
  Receive Date: 20121120
  Receipt Date: 20121120
  Transmission Date: 20130627
  Serious: Yes (Other)
  Sender: FDA-Public Use
  Company Number: AR-COVIDIEN/TYCO HEALTHCARE/MALLINCKRODT-T201204118

PATIENT
  Age: 65 Year

DRUGS (3)
  1. OPTIRAY [Suspect]
     Indication: PRODUCT USED FOR UNKNOWN INDICATION
     Dosage: Mean dose 175 +/- 19.4 ml
  2. SODIUM BICARBONATE [Concomitant]
     Indication: PROPHYLAXIS
     Dosage: 154 mmol, 3 ml/kg/hr 2 hours prior to procedure
  3. SODIUM BICARBONATE [Concomitant]
     Dosage: 154 mmol, 1 ml/kg/hr during procedure and for next 6-12 hours

REACTIONS (1)
  - Renal failure acute [Unknown]
